FAERS Safety Report 6195190-7 (Version None)
Quarter: 2009Q2

REPORT INFORMATION
  Report Type: 
  Country: None (occurrence: None)
  Receive Date: 20090519
  Receipt Date: 20090514
  Transmission Date: 20091009
  Serious: Yes (Other)
  Sender: FDA-Public Use
  Company Number: US-MERCK-0905USA01817

PATIENT
  Age: 75 Year
  Sex: Female

DRUGS (13)
  1. FOSAMAX [Suspect]
     Indication: OSTEOPOROSIS
     Route: 048
     Dates: start: 19950101
  2. BONIVA [Suspect]
     Indication: OSTEOPOROSIS
     Route: 042
     Dates: start: 20090224, end: 20090224
  3. BONIVA [Suspect]
     Route: 048
     Dates: start: 20050826
  4. DIOVAN HCT [Concomitant]
     Route: 065
  5. SYNTHROID [Concomitant]
     Route: 065
  6. PREDNISONE [Concomitant]
     Route: 065
  7. COMBIVENT [Concomitant]
     Route: 065
  8. SPIRIVA [Concomitant]
     Route: 065
  9. FLONASE [Concomitant]
     Route: 065
  10. MAGNESIUM OXIDE [Concomitant]
     Route: 065
  11. CALCIUM (UNSPECIFIED) [Concomitant]
     Route: 065
  12. VITAMIN D (UNSPECIFIED) [Concomitant]
     Route: 065
  13. VITAMINS (UNSPECIFIED) [Concomitant]
     Route: 065

REACTIONS (25)
  - ABDOMINAL DISCOMFORT [None]
  - ANXIETY [None]
  - CHEST PAIN [None]
  - DIZZINESS [None]
  - DRUG INEFFECTIVE [None]
  - DYSURIA [None]
  - EXOSTOSIS [None]
  - FATIGUE [None]
  - FOOT FRACTURE [None]
  - GASTRITIS [None]
  - GASTRITIS EROSIVE [None]
  - GASTROINTESTINAL DISORDER [None]
  - HEADACHE [None]
  - HYPERTENSION [None]
  - JOINT SWELLING [None]
  - LARYNGITIS [None]
  - MUSCLE SPASMS [None]
  - NEUROPATHY PERIPHERAL [None]
  - OEDEMA PERIPHERAL [None]
  - OSTEOARTHRITIS [None]
  - OSTEOCHONDROSIS [None]
  - PALPITATIONS [None]
  - SCOLIOSIS [None]
  - SPONDYLOLYSIS [None]
  - VARICOSE VEIN [None]
